FAERS Safety Report 25951966 (Version 2)
Quarter: 2025Q4

REPORT INFORMATION
  Report Type: Report from Study
  Country: TR (occurrence: TR)
  Receive Date: 20251023
  Receipt Date: 20251121
  Transmission Date: 20260117
  Serious: Yes (Hospitalization)
  Sender: MYLAN
  Company Number: TR-MYLANLABS-2025M1089013

PATIENT
  Age: 22 Year
  Sex: Female

DRUGS (12)
  1. CLOZAPINE [Suspect]
     Active Substance: CLOZAPINE
     Dosage: 6.25 MILLIGRAM, QD
     Dates: end: 2014
  2. CLOZAPINE [Suspect]
     Active Substance: CLOZAPINE
     Dosage: 6.25 MILLIGRAM, QD
     Dates: end: 2014
  3. CLOZAPINE [Suspect]
     Active Substance: CLOZAPINE
     Dosage: 6.25 MILLIGRAM, QD
     Route: 048
     Dates: end: 2014
  4. CLOZAPINE [Suspect]
     Active Substance: CLOZAPINE
     Dosage: 6.25 MILLIGRAM, QD
     Route: 048
     Dates: end: 2014
  5. CLOZAPINE [Suspect]
     Active Substance: CLOZAPINE
     Dosage: 88 MILLIGRAM, QD
  6. CLOZAPINE [Suspect]
     Active Substance: CLOZAPINE
     Dosage: 88 MILLIGRAM, QD
  7. CLOZAPINE [Suspect]
     Active Substance: CLOZAPINE
     Dosage: 88 MILLIGRAM, QD
     Route: 065
  8. CLOZAPINE [Suspect]
     Active Substance: CLOZAPINE
     Dosage: 88 MILLIGRAM, QD
     Route: 065
  9. BUDESONIDE [Concomitant]
     Active Substance: BUDESONIDE
     Indication: Asthma
     Dosage: UNK
  10. BUDESONIDE [Concomitant]
     Active Substance: BUDESONIDE
     Dosage: UNK
     Route: 055
  11. BUDESONIDE [Concomitant]
     Active Substance: BUDESONIDE
     Dosage: UNK
     Route: 055
  12. BUDESONIDE [Concomitant]
     Active Substance: BUDESONIDE
     Dosage: UNK

REACTIONS (2)
  - Neurotoxicity [Recovered/Resolved]
  - Constipation [Unknown]
